FAERS Safety Report 16663966 (Version 2)
Quarter: 2019Q3

REPORT INFORMATION
  Report Type: Report from Study
  Country: CA (occurrence: CA)
  Receive Date: 20190802
  Receipt Date: 20190823
  Transmission Date: 20191004
  Serious: Yes (Hospitalization)
  Sender: FDA-Public Use
  Company Number: CA-HLSUS-2019-CA-000846

PATIENT
  Age: 56 Year
  Sex: Male
  Weight: 119.6 kg

DRUGS (7)
  1. CLOZARIL [Suspect]
     Active Substance: CLOZAPINE
     Indication: SCHIZOAFFECTIVE DISORDER
     Dosage: 125 MG HS
     Route: 048
     Dates: start: 20190624, end: 20190703
  2. HALDOL [Concomitant]
     Active Substance: HALOPERIDOL
  3. NORVASAC [Concomitant]
     Route: 048
  4. TENORMIN [Concomitant]
     Active Substance: ATENOLOL
     Route: 048
  5. PALIPERIDONE. [Concomitant]
     Active Substance: PALIPERIDONE
  6. ASA [Concomitant]
     Active Substance: ASPIRIN
     Route: 048
  7. PROZAC [Concomitant]
     Active Substance: FLUOXETINE HYDROCHLORIDE
     Dosage: 4 D
     Route: 048

REACTIONS (5)
  - Dyspnoea [Recovered/Resolved]
  - C-reactive protein [Recovered/Resolved]
  - C-reactive protein increased [Unknown]
  - Cardio-respiratory distress [Unknown]
  - Pyrexia [Recovered/Resolved]

NARRATIVE: CASE EVENT DATE: 20190701
